FAERS Safety Report 9797010 (Version 2)
Quarter: 2014Q1

REPORT INFORMATION
  Report Type: Spontaneous
  Country: US (occurrence: US)
  Receive Date: 20140105
  Receipt Date: 20140107
  Transmission Date: 20141002
  Serious: No
  Sender: FDA-Public Use
  Company Number: US-009507513-1312USA012577

PATIENT
  Age: 56 Year
  Sex: Female

DRUGS (3)
  1. JANUMET XR [Suspect]
     Indication: TYPE 2 DIABETES MELLITUS
     Dosage: 100/1000MG ONCE DAILY IN THE EVENING
     Route: 048
     Dates: start: 201306
  2. GLYBURIDE [Concomitant]
     Dosage: UNK
  3. VITAMIN D (UNSPECIFIED) [Concomitant]
     Dosage: UNK

REACTIONS (1)
  - Alopecia [Not Recovered/Not Resolved]
